FAERS Safety Report 10645926 (Version 1)
Quarter: 2014Q4

REPORT INFORMATION
  Report Type: Spontaneous
  Country: TR (occurrence: None)
  Receive Date: 20141209
  Receipt Date: 20141209
  Transmission Date: 20150529
  Serious: Yes (Hospitalization)
  Sender: FDA-Public Use
  Company Number: IPC201411-000659

PATIENT
  Age: 21 Year
  Sex: Female

DRUGS (3)
  1. HYDROXYCHLOROQUINE SULFATE. [Suspect]
     Active Substance: HYDROXYCHLOROQUINE SULFATE
  2. AZATHIOPRINE. [Suspect]
     Active Substance: AZATHIOPRINE
  3. PREDNISOLONE. [Suspect]
     Active Substance: PREDNISOLONE

REACTIONS (9)
  - Arthritis [None]
  - Bronchopulmonary aspergillosis [None]
  - Osteonecrosis [None]
  - Emphysema [None]
  - Staphylococcal infection [None]
  - Neutropenia [None]
  - Drug intolerance [None]
  - Pneumonia [None]
  - Pneumothorax [None]
